FAERS Safety Report 9664895 (Version 1)
Quarter: 2013Q4

REPORT INFORMATION
  Report Type: Spontaneous
  Country: IT (occurrence: IT)
  Receive Date: 20131101
  Receipt Date: 20131101
  Transmission Date: 20140711
  Serious: Yes (Hospitalization)
  Sender: FDA-Public Use
  Company Number: IT-GLAXOSMITHKLINE-B0937698A

PATIENT
  Age: 30 Year
  Sex: Female

DRUGS (2)
  1. TROBALT [Suspect]
     Indication: EPILEPSY
     Dosage: 300MG PER DAY
     Route: 048
  2. ETINILESTRADIOLO [Suspect]
     Indication: ENDOMETRIOSIS
     Dosage: 13MCG PER DAY
     Route: 065

REACTIONS (3)
  - Drug-induced liver injury [Recovering/Resolving]
  - Asthenia [Recovering/Resolving]
  - Alanine aminotransferase increased [Recovering/Resolving]
